FAERS Safety Report 14485089 (Version 1)
Quarter: 2018Q1

REPORT INFORMATION
  Report Type: Spontaneous
  Country: US (occurrence: US)
  Receive Date: 20180205
  Receipt Date: 20180205
  Transmission Date: 20180509
  Serious: No
  Sender: FDA-Public Use
  Company Number: US-PFIZER INC-2018042662

PATIENT
  Age: 9 Year
  Sex: Male

DRUGS (1)
  1. QUILLIVANT XR [Suspect]
     Active Substance: METHYLPHENIDATE HYDROCHLORIDE
     Dosage: UNK

REACTIONS (7)
  - Screaming [Unknown]
  - Disturbance in attention [Unknown]
  - Agitation [Unknown]
  - Irritability [Unknown]
  - Crying [Unknown]
  - Withdrawal syndrome [Unknown]
  - Mood swings [Unknown]
